FAERS Safety Report 7546441-5 (Version None)
Quarter: 2011Q2

REPORT INFORMATION
  Report Type: 
  Country: None (occurrence: None)
  Receive Date: 20110607
  Receipt Date: 20110523
  Transmission Date: 20111010
  Serious: Yes (Hospitalization)
  Sender: FDA-Public Use
  Company Number: 2011MA006230

PATIENT
  Age: 74 Year
  Sex: Female

DRUGS (5)
  1. AMANTADINE HYDROCHLORIDE [Suspect]
     Indication: PARKINSON'S DISEASE
     Dosage: 300 MG, QD,
  2. ROPINIROLE [Concomitant]
  3. RIVASTIGMINE [Concomitant]
  4. CLOZAPINE [Concomitant]
  5. L-DOPA [Concomitant]

REACTIONS (6)
  - HALLUCINATION [None]
  - BALANCE DISORDER [None]
  - DYSARTHRIA [None]
  - MYOCLONUS [None]
  - CONFUSIONAL STATE [None]
  - FALL [None]
